FAERS Safety Report 7540093-6 (Version None)
Quarter: 2011Q2

REPORT INFORMATION
  Report Type: 
  Country: None (occurrence: None)
  Receive Date: 20110610
  Receipt Date: 20110531
  Transmission Date: 20111010
  Serious: Yes (Life-Threatening, Hospitalization, Other)
  Sender: FDA-Public Use
  Company Number: DE-TEVA-284014GER

PATIENT
  Age: 70 Year
  Sex: Male
  Weight: 77 kg

DRUGS (8)
  1. FENISTIL, 1 MG, DRG, NOVARTIS [Concomitant]
     Dosage: EXCEPTIN 08 JAN 2011: 1X1, BREAK: 09 JAN 2011
     Route: 048
     Dates: start: 20110108, end: 20110118
  2. MIDAZOLAM, AMP, NN [Concomitant]
     Dosage: 1X5 MG I.V. ON 02 JAN 2011 AND 4.5 MG ON 13 JAN 2011
     Route: 042
     Dates: start: 20110102, end: 20110113
  3. RAMIPRIL [Suspect]
     Dosage: 2.5 MILLIGRAM; BREAK: 03 JAN 2011
     Route: 049
     Dates: start: 20100201, end: 20110119
  4. ZINACEF [Interacting]
     Indication: ENDOCARDITIS
     Dosage: 1.5-3 G DAILY I.V.
     Route: 042
     Dates: start: 20110113, end: 20110119
  5. PROTAPHANE, AMP, NOVO NORDISK [Concomitant]
     Route: 058
     Dates: start: 19950101
  6. SOBELIN, 600 MG, AMP, PFIZER [Concomitant]
     Dosage: 600-1200 MG DAILY I.V.
     Route: 042
     Dates: start: 20110109, end: 20110113
  7. GENTAMICIN [Interacting]
     Indication: ENDOCARDITIS
     Dosage: 240 MG DAILY I.V., EXCEPTING 03 JAN 2011: 80 MG AND 04 JAN 2011: 160 MG
     Route: 042
     Dates: start: 20110103, end: 20110119
  8. FRAXIPARIN, 0,3 ML, AMP, GSK [Concomitant]
     Dosage: 1X2850 IU DAILY S.C., BREAK: 10-15 JAN 2011
     Route: 058
     Dates: start: 20110104, end: 20110118

REACTIONS (2)
  - RENAL FAILURE ACUTE [None]
  - DRUG INTERACTION [None]
